FAERS Safety Report 9636314 (Version 5)
Quarter: 2014Q2

REPORT INFORMATION
  Report Type: Report from Study
  Country: DE (occurrence: DE)
  Receive Date: 20131021
  Receipt Date: 20140620
  Transmission Date: 20141212
  Serious: Yes (Hospitalization)
  Sender: FDA-Public Use
  Company Number: DE-ABBVIE-13P-062-1158649-00

PATIENT
  Sex: Female

DRUGS (9)
  1. HUMIRA [Suspect]
     Indication: COLITIS ULCERATIVE
     Route: 058
     Dates: start: 20130102, end: 201311
  2. HUMIRA [Suspect]
     Route: 058
     Dates: start: 201311, end: 201402
  3. HUMIRA [Suspect]
     Route: 058
     Dates: start: 20140429
  4. ARCOXIA [Concomitant]
     Indication: PRODUCT USED FOR UNKNOWN INDICATION
  5. KREON [Concomitant]
     Indication: PRODUCT USED FOR UNKNOWN INDICATION
  6. PANTOPRAZOLE [Concomitant]
     Indication: PRODUCT USED FOR UNKNOWN INDICATION
  7. RESTEX [Concomitant]
     Indication: PRODUCT USED FOR UNKNOWN INDICATION
  8. MANC, MODIFIED AND ACTIVATED NATURAL CLINOPTILOLITE (TOXAPREVENT) [Concomitant]
     Indication: PRODUCT USED FOR UNKNOWN INDICATION
  9. LYRICA [Concomitant]
     Indication: PRODUCT USED FOR UNKNOWN INDICATION

REACTIONS (4)
  - Ileus [Recovering/Resolving]
  - Inflammatory marker increased [Not Recovered/Not Resolved]
  - Abscess [Not Recovered/Not Resolved]
  - Pneumonia [Not Recovered/Not Resolved]
